FAERS Safety Report 25538988 (Version 1)
Quarter: 2025Q3

REPORT INFORMATION
  Report Type: Spontaneous
  Country: US (occurrence: None)
  Receive Date: 20250709
  Receipt Date: 20250709
  Transmission Date: 20251021
  Serious: No
  Sender: FDA-CTU
  Company Number: None

PATIENT
  Age: 45 Year
  Sex: Female
  Weight: 83.25 kg

DRUGS (5)
  1. SLYND [Suspect]
     Active Substance: DROSPIRENONE
     Indication: Uterine haemorrhage
     Dates: start: 20250703, end: 20250709
  2. METOPROLOL [Concomitant]
     Active Substance: METOPROLOL
  3. PAXIL [Concomitant]
     Active Substance: PAROXETINE HYDROCHLORIDE
  4. ARMOUR THYROID [Concomitant]
     Active Substance: THYROID, PORCINE
  5. THYROID [Concomitant]
     Active Substance: LEVOTHYROXINE\LIOTHYRONINE

REACTIONS (3)
  - Anxiety [None]
  - Anger [None]
  - Tearfulness [None]

NARRATIVE: CASE EVENT DATE: 20250709
